FAERS Safety Report 25442349 (Version 1)
Quarter: 2025Q2

REPORT INFORMATION
  Report Type: Spontaneous
  Country: US (occurrence: US)
  Receive Date: 20250616
  Receipt Date: 20250616
  Transmission Date: 20250717
  Serious: No
  Sender: ELI LILLY AND COMPANY
  Company Number: US-ELI_LILLY_AND_COMPANY-US202506005358

PATIENT
  Sex: Female

DRUGS (1)
  1. AMYVID [Suspect]
     Active Substance: FLORBETAPIR F-18
     Indication: Positron emission tomogram
     Route: 065
     Dates: start: 20250512, end: 20250512

REACTIONS (3)
  - Occipital neuralgia [Unknown]
  - Mass [Unknown]
  - Headache [Unknown]

NARRATIVE: CASE EVENT DATE: 20250512
